FAERS Safety Report 7425415-9 (Version None)
Quarter: 2011Q2

REPORT INFORMATION
  Report Type: 
  Country: None (occurrence: None)
  Receive Date: 20110415
  Receipt Date: 20110415
  Transmission Date: 20111010
  Serious: Yes (Other)
  Sender: FDA-Public Use
  Company Number: None

PATIENT
  Age: 41 Year
  Sex: Male
  Weight: 58.9676 kg

DRUGS (1)
  1. PROPECIA [Suspect]
     Indication: ALOPECIA
     Dosage: 1 MG ONCE PER DAY PO
     Route: 048
     Dates: start: 20041212, end: 20080701

REACTIONS (9)
  - ERECTILE DYSFUNCTION [None]
  - EMOTIONAL DISORDER [None]
  - AGGRESSION [None]
  - LOSS OF LIBIDO [None]
  - APATHY [None]
  - EJACULATION DISORDER [None]
  - SEXUAL DYSFUNCTION [None]
  - DISTURBANCE IN SEXUAL AROUSAL [None]
  - BLUNTED AFFECT [None]
